FAERS Safety Report 16457484 (Version 10)
Quarter: 2021Q1

REPORT INFORMATION
  Report Type: Spontaneous
  Country: US (occurrence: US)
  Receive Date: 20190620
  Receipt Date: 20210308
  Transmission Date: 20210419
  Serious: Yes (Hospitalization, Other)
  Sender: FDA-Public Use
  Company Number: US-PFIZER INC-2019260189

PATIENT
  Age: 34 Year
  Sex: Male

DRUGS (4)
  1. SOMAVERT [Suspect]
     Active Substance: PEGVISOMANT
     Indication: GIGANTISM
     Dosage: 15 MG, DAILY
     Route: 058
     Dates: start: 20190509
  2. SOMAVERT [Suspect]
     Active Substance: PEGVISOMANT
     Indication: ACROMEGALY
     Dosage: 10 MG, DAILY (7 WEEK)
     Route: 058
     Dates: start: 20190509
  3. SOMAVERT [Suspect]
     Active Substance: PEGVISOMANT
     Dosage: 20 MG, DAILY
     Route: 058
     Dates: start: 20190509
  4. SOMAVERT [Suspect]
     Active Substance: PEGVISOMANT
     Dosage: 25 MG, DAILY
     Route: 058
     Dates: start: 20190509, end: 20200912

REACTIONS (15)
  - Weight increased [Not Recovered/Not Resolved]
  - Laziness [Unknown]
  - Angina pectoris [Unknown]
  - Headache [Unknown]
  - Insulin-like growth factor increased [Not Recovered/Not Resolved]
  - Hypoglycaemia [Unknown]
  - Chest pain [Not Recovered/Not Resolved]
  - Faeces discoloured [Unknown]
  - Abdominal infection [Unknown]
  - Depression [Not Recovered/Not Resolved]
  - Product dose omission in error [Not Recovered/Not Resolved]
  - Stress [Not Recovered/Not Resolved]
  - Osteomyelitis [Unknown]
  - Myocardial infarction [Unknown]
  - Fatigue [Not Recovered/Not Resolved]

NARRATIVE: CASE EVENT DATE: 2019
